FAERS Safety Report 13340417 (Version 6)
Quarter: 2018Q2

REPORT INFORMATION
  Report Type: Spontaneous
  Country: US (occurrence: US)
  Receive Date: 20170316
  Receipt Date: 20180418
  Transmission Date: 20180711
  Serious: No
  Sender: FDA-Public Use
  Company Number: US-PFIZER INC-2017107265

PATIENT
  Age: 81 Year
  Sex: Female
  Weight: 68 kg

DRUGS (1)
  1. XELJANZ XR [Suspect]
     Active Substance: TOFACITINIB CITRATE
     Indication: RHEUMATOID ARTHRITIS
     Dosage: 11 MG, DAILY
     Route: 048

REACTIONS (10)
  - Bone disorder [Unknown]
  - Pruritus [Unknown]
  - Peripheral coldness [Unknown]
  - Drug ineffective [Unknown]
  - Cardiovascular disorder [Unknown]
  - Back pain [Unknown]
  - Abdominal pain [Recovering/Resolving]
  - Sinus headache [Unknown]
  - Paraesthesia [Unknown]
  - Diarrhoea [Recovering/Resolving]
